FAERS Safety Report 7490884-5 (Version None)
Quarter: 2011Q2

REPORT INFORMATION
  Report Type: 
  Country: None (occurrence: None)
  Receive Date: 20110519
  Receipt Date: 20110509
  Transmission Date: 20111010
  Serious: Yes (Other)
  Sender: FDA-Public Use
  Company Number: GR-ABBOTT-10P-066-0630729-00

PATIENT
  Sex: Female
  Weight: 85 kg

DRUGS (4)
  1. ESCITALOPRAM OXALATE [Concomitant]
     Indication: DEPRESSION
     Dates: start: 20080703
  2. HUMIRA [Suspect]
     Indication: CROHN'S DISEASE
     Route: 058
     Dates: start: 20080313, end: 20100101
  3. HUMIRA [Suspect]
     Route: 058
     Dates: start: 20100115
  4. IRBESARTAN [Concomitant]
     Indication: HYPERTENSION
     Dates: start: 20050101

REACTIONS (1)
  - DEMYELINATION [None]
